FAERS Safety Report 7078506-9 (Version None)
Quarter: 2010Q4

REPORT INFORMATION
  Report Type: 
  Country: None (occurrence: None)
  Receive Date: 20101101
  Receipt Date: 20101101
  Transmission Date: 20110411
  Serious: No
  Sender: FDA-Public Use
  Company Number: None

PATIENT
  Age: 61 Year
  Sex: Female
  Weight: 69.4003 kg

DRUGS (1)
  1. METHOTREXATE [Suspect]
     Indication: RHEUMATOID ARTHRITIS
     Dosage: .7 ML WEEKLY SUBDERMAL
     Route: 059
     Dates: start: 20100707, end: 20101013

REACTIONS (4)
  - CONTUSION [None]
  - PAIN [None]
  - PRODUCT QUALITY ISSUE [None]
  - SWELLING [None]
